FAERS Safety Report 6860146-5 (Version None)
Quarter: 2010Q3

REPORT INFORMATION
  Report Type: 
  Country: None (occurrence: None)
  Receive Date: 20100720
  Receipt Date: 20100714
  Transmission Date: 20110219
  Serious: Yes (Disabling, Other)
  Sender: FDA-Public Use
  Company Number: US-WYE-H15649310

PATIENT
  Sex: Female
  Weight: 86.26 kg

DRUGS (6)
  1. PRISTIQ [Suspect]
     Indication: DEPRESSION
     Route: 048
     Dates: start: 20090101, end: 20091224
  2. PRISTIQ [Suspect]
     Indication: OBSESSIVE-COMPULSIVE DISORDER
     Dosage: ^DECIDED TO WEAN HERSELF OFF^
     Route: 048
     Dates: start: 20091225, end: 20100610
  3. PAMELOR [Concomitant]
     Indication: MIGRAINE
  4. MEVACOR [Concomitant]
     Indication: HYPERLIPIDAEMIA
  5. GLUCOPHAGE [Concomitant]
     Indication: DIABETES MELLITUS
  6. LOPRESSOR [Concomitant]
     Indication: HYPERTENSION

REACTIONS (7)
  - ANXIETY [None]
  - DEPRESSION [None]
  - DRUG DEPENDENCE [None]
  - DRUG EFFECT DECREASED [None]
  - DRUG WITHDRAWAL SYNDROME [None]
  - DYSPHONIA [None]
  - PAIN [None]
